FAERS Safety Report 24115591 (Version 2)
Quarter: 2025Q3

REPORT INFORMATION
  Report Type: Spontaneous
  Country: US (occurrence: US)
  Receive Date: 20240721
  Receipt Date: 20250718
  Transmission Date: 20251021
  Serious: No
  Sender: NOVO NORDISK
  Company Number: US-NOVOPROD-1242031

PATIENT
  Age: 72 Year
  Sex: Female

DRUGS (3)
  1. WEGOVY [Suspect]
     Active Substance: SEMAGLUTIDE
     Indication: Obesity
     Route: 058
     Dates: start: 20240219, end: 20240325
  2. WEGOVY [Suspect]
     Active Substance: SEMAGLUTIDE
     Route: 058
     Dates: start: 20240429
  3. PEPTO BISMOL INSTACOOL [Concomitant]
     Indication: Product used for unknown indication

REACTIONS (8)
  - Oropharyngeal discomfort [Recovered/Resolved]
  - Rhinorrhoea [Recovered/Resolved]
  - Vomiting [Recovered/Resolved]
  - Diarrhoea [Recovered/Resolved]
  - Nausea [Recovered/Resolved]
  - Abdominal discomfort [Recovered/Resolved]
  - Abdominal distension [Recovered/Resolved]
  - Eructation [Recovered/Resolved]

NARRATIVE: CASE EVENT DATE: 20240220
